FAERS Safety Report 17211525 (Version 2)
Quarter: 2020Q1

REPORT INFORMATION
  Report Type: Spontaneous
  Country: BR (occurrence: BR)
  Receive Date: 20191229
  Receipt Date: 20200213
  Transmission Date: 20200409
  Serious: Yes (Other)
  Sender: FDA-Public Use
  Company Number: BR-AMGEN-BRASP2019215363

PATIENT
  Age: 73 Year
  Sex: Male

DRUGS (1)
  1. ENBREL [Suspect]
     Active Substance: ETANERCEPT
     Indication: PRODUCT USED FOR UNKNOWN INDICATION
     Dosage: UNK, (EVERY 15 DAYS)
     Route: 065
     Dates: end: 201910

REACTIONS (3)
  - Off label use [Unknown]
  - Lung neoplasm [Unknown]
  - Decreased immune responsiveness [Unknown]

NARRATIVE: CASE EVENT DATE: 201806
